FAERS Safety Report 5597089-3 (Version None)
Quarter: 2008Q1

REPORT INFORMATION
  Report Type: 
  Country: None (occurrence: None)
  Receive Date: 20080121
  Receipt Date: 20080109
  Transmission Date: 20080703
  Serious: Yes (Hospitalization)
  Sender: FDA-Public Use
  Company Number: JP-WYE-H02112208

PATIENT
  Age: 81 Year
  Sex: Female

DRUGS (1)
  1. HYPEN [Suspect]
     Indication: BACK PAIN
     Dosage: UNKNOWN
     Dates: end: 20070830

REACTIONS (4)
  - FAECES DISCOLOURED [None]
  - MELAENA [None]
  - SMALL INTESTINE ULCER [None]
  - VERTIGO [None]
